FAERS Safety Report 5687182-9 (Version None)
Quarter: 2008Q1

REPORT INFORMATION
  Report Type: 
  Country: None (occurrence: None)
  Receive Date: 20080328
  Receipt Date: 20070504
  Transmission Date: 20080703
  Serious: No
  Sender: FDA-Public Use
  Company Number: US-BAYER-US-2007-016404

PATIENT
  Age: 38 Year
  Sex: Female

DRUGS (7)
  1. MIRENA [Suspect]
     Indication: CONTRACEPTION
     Route: 015
     Dates: start: 20070430
  2. OTHER ANTI-ASTHMATICS, INHALANTS [Concomitant]
     Indication: ASTHMA
     Route: 055
  3. SYNTHROID [Concomitant]
     Dosage: UNIT DOSE: 375 ?G
  4. DEPAKOTE [Concomitant]
     Dosage: UNIT DOSE: 2500 MG
  5. TRILEPTAL [Concomitant]
     Dosage: UNIT DOSE: 600 MG
  6. SEROQUEL [Concomitant]
     Dosage: UNIT DOSE: 75 MG
  7. KLONOPIN [Concomitant]
     Dosage: UNIT DOSE: 1.5 MG

REACTIONS (1)
  - ABDOMINAL PAIN LOWER [None]
